FAERS Safety Report 17286489 (Version 3)
Quarter: 2020Q1

REPORT INFORMATION
  Report Type: Spontaneous
  Country: BR (occurrence: BR)
  Receive Date: 20200119
  Receipt Date: 20200224
  Transmission Date: 20200409
  Serious: Yes (Other)
  Sender: FDA-Public Use
  Company Number: BR-EMD SERONO-9139969

PATIENT
  Age: 68 Year
  Sex: Female
  Weight: 62 kg

DRUGS (7)
  1. ATENOLOL. [Concomitant]
     Active Substance: ATENOLOL
     Indication: PRODUCT USED FOR UNKNOWN INDICATION
     Dosage: COMPLETE THE DOSE OF 50 MG
  2. HYDROCHLOROTHIAZIDE. [Concomitant]
     Active Substance: HYDROCHLOROTHIAZIDE
     Indication: PRODUCT USED FOR UNKNOWN INDICATION
  3. GLIFAGE [Suspect]
     Active Substance: METFORMIN HYDROCHLORIDE
     Indication: PRODUCT USED FOR UNKNOWN INDICATION
     Dosage: MANUFACTURING DATE: DEC 2019
     Route: 048
  4. GLIFAGE [Suspect]
     Active Substance: METFORMIN HYDROCHLORIDE
     Dosage: STOPPED TAKING 2 TABLETS AT NIGHT, USING ONLY 1 BEFORE SLEEPING
     Route: 048
  5. GLIFAGE [Suspect]
     Active Substance: METFORMIN HYDROCHLORIDE
     Dosage: DOSE REDUCED ON 10 FEB 2020
     Route: 048
  6. ARADOIS [Concomitant]
     Active Substance: LOSARTAN POTASSIUM
     Indication: PRODUCT USED FOR UNKNOWN INDICATION
  7. HYDROCHLOROTHIAZIDE. [Concomitant]
     Active Substance: HYDROCHLOROTHIAZIDE
     Dosage: DOSE REDUCED
     Dates: start: 20200210

REACTIONS (12)
  - Dry skin [Unknown]
  - Myocardial infarction [Unknown]
  - Hyperhidrosis [Recovering/Resolving]
  - Headache [Recovering/Resolving]
  - Intentional product use issue [Not Recovered/Not Resolved]
  - Urinary tract infection bacterial [Unknown]
  - Drug intolerance [Unknown]
  - Weight decreased [Unknown]
  - Hypotension [Unknown]
  - Decreased immune responsiveness [Unknown]
  - Renal pain [Unknown]
  - Hyperacusis [Unknown]

NARRATIVE: CASE EVENT DATE: 20191121
